FAERS Safety Report 9337832 (Version 2)
Quarter: 2013Q3

REPORT INFORMATION
  Report Type: Report from Study
  Country: FR (occurrence: FR)
  Receive Date: 20130607
  Receipt Date: 20130725
  Transmission Date: 20140515
  Serious: Yes (Hospitalization)
  Sender: FDA-Public Use
  Company Number: FR-TEVA-410890USA

PATIENT
  Age: 56 Year
  Sex: Male
  Weight: 168 kg

DRUGS (8)
  1. LEVACT [Suspect]
     Indication: B-CELL SMALL LYMPHOCYTIC LYMPHOMA
     Dosage: 2 TIME PER CYCLE
     Route: 042
     Dates: start: 20130404, end: 20130405
  2. ARZERRA (OFATUMUMAB) [Suspect]
     Indication: B-CELL SMALL LYMPHOCYTIC LYMPHOMA
     Route: 042
     Dates: start: 20130327
  3. ARZERRA (OFATUMUMAB) [Suspect]
     Route: 042
     Dates: start: 20130403
  4. SOLUMEDROL [Concomitant]
     Dosage: 1780 MILLIGRAM DAILY;
     Dates: start: 20130403, end: 20130405
  5. ZELITREX [Concomitant]
     Indication: INFECTION PROPHYLAXIS
     Dosage: 1500 MILLIGRAM DAILY;
  6. BACTRIM FORTE [Concomitant]
     Indication: PROPHYLAXIS
     Dosage: ONE DOSAGE FORM 3 TIMES A WEEK
     Route: 048
  7. SPECIAFOLDINE [Concomitant]
     Indication: SUPPLEMENTATION THERAPY
     Route: 048
  8. MOPRAL [Concomitant]
     Indication: PROPHYLAXIS AGAINST GASTROINTESTINAL ULCER
     Dosage: 20 MILLIGRAM DAILY;
     Route: 048

REACTIONS (1)
  - Diabetes mellitus [Recovered/Resolved with Sequelae]
